FAERS Safety Report 5865960-0 (Version None)
Quarter: 2008Q3

REPORT INFORMATION
  Report Type: 
  Country: None (occurrence: None)
  Receive Date: 20080829
  Receipt Date: 20080826
  Transmission Date: 20090109
  Serious: Yes (Hospitalization, Disabling)
  Sender: FDA-Public Use
  Company Number: US-GILEAD-2008-0017907

PATIENT
  Sex: Male

DRUGS (11)
  1. LETAIRIS [Suspect]
     Indication: PULMONARY ARTERIAL HYPERTENSION
     Route: 048
     Dates: start: 20080726, end: 20080729
  2. REVATIO [Concomitant]
     Indication: PULMONARY ARTERIAL HYPERTENSION
     Dosage: 20MG TO 40 MG
     Dates: end: 20080725
  3. COREG [Concomitant]
  4. ZOCOR [Concomitant]
     Route: 048
  5. ASPIRIN [Concomitant]
  6. DIOVAN [Concomitant]
     Dates: end: 20080725
  7. SPIRIVA [Concomitant]
  8. ADVAIR DISKUS 250/50 [Concomitant]
  9. PLAVIX [Concomitant]
     Route: 048
  10. JANUVIA [Concomitant]
     Dates: end: 20080725
  11. AMARYL [Concomitant]
     Route: 048

REACTIONS (1)
  - RENAL FAILURE [None]
